FAERS Safety Report 10741094 (Version 1)
Quarter: 2015Q1

REPORT INFORMATION
  Report Type: Spontaneous
  Country: US (occurrence: US)
  Receive Date: 20150127
  Receipt Date: 20150127
  Transmission Date: 20150721
  Serious: No
  Sender: FDA-Public Use
  Company Number: US-MYLANLABS-2014M1006420

PATIENT
  Age: 78 Year
  Sex: Male
  Weight: 129.25 kg

DRUGS (2)
  1. METOLAZONE TABLETS, USP [Suspect]
     Active Substance: METOLAZONE
     Dosage: 5 MG, BIWEEKLY
     Route: 048
  2. METOLAZONE TABLETS, USP [Suspect]
     Active Substance: METOLAZONE
     Indication: OEDEMA PERIPHERAL
     Dosage: 5 MG, BIWEEKLY
     Route: 048

REACTIONS (2)
  - Blood urine present [Not Recovered/Not Resolved]
  - Blood urea increased [Recovered/Resolved]

NARRATIVE: CASE EVENT DATE: 20140921
